FAERS Safety Report 5060986-1 (Version None)
Quarter: 2006Q3

REPORT INFORMATION
  Report Type: 
  Country: None (occurrence: None)
  Receive Date: 20060720
  Receipt Date: 20060707
  Transmission Date: 20061208
  Serious: Yes (Other)
  Sender: FDA-Public Use
  Company Number: 2006-146

PATIENT
  Age: 62 Year
  Sex: Female

DRUGS (1)
  1. AZITHROMYCIN [Suspect]
     Indication: RESPIRATORY TRACT INFECTION

REACTIONS (4)
  - COLLAGEN DISORDER [None]
  - DERMATITIS ALLERGIC [None]
  - SKIN TOXICITY [None]
  - STEVENS-JOHNSON SYNDROME [None]
